FAERS Safety Report 18135003 (Version 1)
Quarter: 2020Q3

REPORT INFORMATION
  Report Type: Spontaneous
  Country: US (occurrence: US)
  Receive Date: 20200811
  Receipt Date: 20200811
  Transmission Date: 20201103
  Serious: No
  Sender: FDA-Public Use
  Company Number: None

PATIENT
  Age: 54 Year
  Sex: Female
  Weight: 91.1 kg

DRUGS (1)
  1. CISPLATIN (119875) [Suspect]
     Active Substance: CISPLATIN
     Dates: end: 20200727

REACTIONS (2)
  - Vaginal cancer [None]
  - Diarrhoea [None]

NARRATIVE: CASE EVENT DATE: 20200728
